FAERS Safety Report 17699992 (Version 1)
Quarter: 2020Q2

REPORT INFORMATION
  Report Type: Spontaneous
  Country: US (occurrence: US)
  Receive Date: 20200423
  Receipt Date: 20200423
  Transmission Date: 20200714
  Serious: Yes (Hospitalization, Other)
  Sender: FDA-Public Use
  Company Number: US-ASTELLAS-2019US028148

PATIENT
  Age: 74 Year
  Sex: Male
  Weight: 126 kg

DRUGS (6)
  1. LEXISCAN [Suspect]
     Active Substance: REGADENOSON
     Indication: SCAN MYOCARDIAL PERFUSION
     Dosage: 0.08MG/ML, 5ML, UNKNOWN FREQ.
     Route: 042
     Dates: start: 20190214, end: 20190214
  2. LEXISCAN [Suspect]
     Active Substance: REGADENOSON
     Indication: SCAN MYOCARDIAL PERFUSION
     Dosage: 0.08MG/ML, 5ML, UNKNOWN FREQ.
     Route: 042
     Dates: start: 20190214, end: 20190214
  3. SYNTHROID [Concomitant]
     Active Substance: LEVOTHYROXINE SODIUM
     Indication: HYPOTHYROIDISM
     Dosage: 125 ?G, EVERY MORNING
     Route: 065
  4. NOVOLOG [Concomitant]
     Active Substance: INSULIN ASPART
     Indication: TYPE 2 DIABETES MELLITUS
     Dosage: UNK UNK, UNKNOWN FREQ.
     Route: 065
  5. LEXISCAN [Suspect]
     Active Substance: REGADENOSON
     Indication: SCAN MYOCARDIAL PERFUSION
     Dosage: 0.08MG/ML, 5ML, UNKNOWN FREQ.
     Route: 042
     Dates: start: 20190214, end: 20190214
  6. LEXISCAN [Suspect]
     Active Substance: REGADENOSON
     Indication: SCAN MYOCARDIAL PERFUSION
     Dosage: 0.08MG/ML, 5ML, UNKNOWN FREQ.
     Route: 042
     Dates: start: 20190214, end: 20190214

REACTIONS (3)
  - Acute myocardial infarction [Unknown]
  - Ventricular extrasystoles [Unknown]
  - Musculoskeletal discomfort [Unknown]
